FAERS Safety Report 6159299-6 (Version None)
Quarter: 2009Q2

REPORT INFORMATION
  Report Type: 
  Country: None (occurrence: None)
  Receive Date: 20090417
  Receipt Date: 20090410
  Transmission Date: 20091009
  Serious: Yes (Death, Other)
  Sender: FDA-Public Use
  Company Number: FR-CELGENEUS-056-20785-09030077

PATIENT
  Age: 82 Year
  Sex: Female
  Weight: 52 kg

DRUGS (1)
  1. THALIDOMIDE PHARMION [Suspect]
     Indication: MULTIPLE MYELOMA
     Route: 048
     Dates: end: 20081230

REACTIONS (3)
  - CARDIAC FAILURE [None]
  - LUNG DISORDER [None]
  - RESPIRATORY DISTRESS [None]
